FAERS Safety Report 6589923-5 (Version None)
Quarter: 2010Q1

REPORT INFORMATION
  Report Type: 
  Country: None (occurrence: None)
  Receive Date: 20100205
  Receipt Date: 20100125
  Transmission Date: 20100710
  Serious: Yes (Hospitalization, Other)
  Sender: FDA-Public Use
  Company Number: 230878J10USA

PATIENT
  Age: 63 Year
  Sex: Male

DRUGS (1)
  1. REBIF [Suspect]
     Indication: MULTIPLE SCLEROSIS
     Dosage: 44 MCG, 3 IN 1 WEEKS, SUBCUTANEOUS
     Route: 058
     Dates: start: 20081212, end: 20100101

REACTIONS (7)
  - AORTIC DISSECTION [None]
  - AORTIC VALVE DISEASE [None]
  - CARDIAC DISORDER [None]
  - OEDEMA [None]
  - PARALYSIS [None]
  - PULMONARY OEDEMA [None]
  - STAPHYLOCOCCAL INFECTION [None]
